FAERS Safety Report 8884276 (Version 1)
Quarter: 2012Q4

REPORT INFORMATION
  Report Type: 
  Country: CN (occurrence: CN)
  Receive Date: 20121102
  Receipt Date: 20121102
  Transmission Date: 20130627
  Serious: Yes (Other)
  Sender: FDA-Public Use
  Company Number: CN-BAYER-2012-115196

PATIENT
  Age: 53 Year
  Sex: Male
  Weight: 87 kg

DRUGS (1)
  1. GLUCOBAY [Suspect]
     Indication: TYPE II DIABETES MELLITUS
     Dosage: 50 mg, TID
     Route: 048
     Dates: start: 20110418, end: 20110419

REACTIONS (1)
  - Hypoglycaemia [Recovered/Resolved]
